FAERS Safety Report 20188893 (Version 1)
Quarter: 2021Q4

REPORT INFORMATION
  Report Type: Spontaneous
  Country: ES (occurrence: ES)
  Receive Date: 20211215
  Receipt Date: 20211215
  Transmission Date: 20220303
  Serious: Yes (Other)
  Sender: FDA-Public Use
  Company Number: ES-PFIZER INC-2021891972

PATIENT
  Age: 75 Year
  Sex: Male

DRUGS (5)
  1. VORICONAZOLE [Suspect]
     Active Substance: VORICONAZOLE
     Indication: Fungal infection
     Dosage: 200 MG, 2X/DAY MAINTENANCE DOSE
     Route: 048
  2. VORICONAZOLE [Suspect]
     Active Substance: VORICONAZOLE
     Dosage: 400 MG, 2X/DAY LOADING DOSE
     Route: 048
  3. VORICONAZOLE [Suspect]
     Active Substance: VORICONAZOLE
     Indication: Fungal infection
     Dosage: 100MCG/0.1ML
  4. VORICONAZOLE [Suspect]
     Active Substance: VORICONAZOLE
     Indication: Fungal infection
     Dosage: 10 MG/ML, DAILY
     Route: 061
  5. VORICONAZOLE [Suspect]
     Active Substance: VORICONAZOLE
     Indication: Fungal infection
     Dosage: UNK

REACTIONS (2)
  - Off label use [Unknown]
  - Drug ineffective for unapproved indication [Unknown]
